FAERS Safety Report 13749157 (Version 1)
Quarter: 2017Q3

REPORT INFORMATION
  Report Type: Spontaneous
  Country: US (occurrence: US)
  Receive Date: 20170713
  Receipt Date: 20170713
  Transmission Date: 20171127
  Serious: Yes (Hospitalization, Disabling, Other)
  Sender: FDA-Public Use
  Company Number: None

PATIENT
  Age: 44 Year
  Sex: Male
  Weight: 101.2 kg

DRUGS (10)
  1. LEVAQUIN [Suspect]
     Active Substance: LEVOFLOXACIN
     Indication: BRONCHITIS
     Dosage: ?          OTHER STRENGTH:MG/ML;QUANTITY:2 INJECTION(S);?
     Route: 042
     Dates: start: 20150806, end: 20150807
  2. CARBAMAZAPRINE [Concomitant]
  3. FLONASE [Concomitant]
     Active Substance: FLUTICASONE PROPIONATE
  4. FLEXERIL [Concomitant]
     Active Substance: CYCLOBENZAPRINE HYDROCHLORIDE
  5. ALLEGRA [Concomitant]
     Active Substance: FEXOFENADINE HYDROCHLORIDE
  6. AMBIEN [Concomitant]
     Active Substance: ZOLPIDEM TARTRATE
  7. TRAMADOL. [Concomitant]
     Active Substance: TRAMADOL
  8. SINGULAIR [Concomitant]
     Active Substance: MONTELUKAST SODIUM
  9. NAPROXEN. [Concomitant]
     Active Substance: NAPROXEN
  10. FIORICET [Concomitant]
     Active Substance: ACETAMINOPHEN\BUTALBITAL\CAFFEINE

REACTIONS (15)
  - Multiple injuries [None]
  - Expired product administered [None]
  - Nephropathy [None]
  - Hypertension [None]
  - Seizure [None]
  - Nerve injury [None]
  - Headache [None]
  - Product use issue [None]
  - Pain [None]
  - Tendon disorder [None]
  - Drug dispensing error [None]
  - Depression [None]
  - Neuropathy peripheral [None]
  - Insomnia [None]
  - Infection [None]

NARRATIVE: CASE EVENT DATE: 20150806
